FAERS Safety Report 5771364-1 (Version None)
Quarter: 2008Q2

REPORT INFORMATION
  Report Type: 
  Country: None (occurrence: None)
  Receive Date: 20080613
  Receipt Date: 20080603
  Transmission Date: 20081010
  Serious: Yes (Other)
  Sender: FDA-Public Use
  Company Number: SE-JNJFOC-20080600646

PATIENT
  Age: 70 Year
  Sex: Male

DRUGS (3)
  1. RISPERDAL [Suspect]
     Indication: AGGRESSION
     Route: 048
  2. ATARAX [Concomitant]
  3. TAVEGYL [Concomitant]

REACTIONS (2)
  - MUSCLE RIGIDITY [None]
  - PAIN [None]
